FAERS Safety Report 19733748 (Version 1)
Quarter: 2021Q3

REPORT INFORMATION
  Report Type: Report from Study
  Country: TR (occurrence: TR)
  Receive Date: 20210823
  Receipt Date: 20210823
  Transmission Date: 20211014
  Serious: Yes (Other)
  Sender: FDA-Public Use
  Company Number: TR-PFIZER INC-202101071539

PATIENT

DRUGS (13)
  1. CARBOPLATIN. [Suspect]
     Active Substance: CARBOPLATIN
     Indication: STEM CELL TRANSPLANT
     Dosage: 700 MG/M2, CYCLIC (ON DAYS 1?3)
  2. IFOSFAMIDE. [Suspect]
     Active Substance: IFOSFAMIDE
     Indication: TESTICULAR GERM CELL TUMOUR
     Dosage: 1000 MG/M2, DAILY (D1,2,3, EVERY 12 DAYS, SALVAGE SECOND LINE CHEMOTHERAPY FOR AT LEAST TWO OR MORE
  3. LEVOFLOXACIN. [Concomitant]
     Active Substance: LEVOFLOXACIN
     Indication: PROPHYLAXIS
     Dosage: 500 MG, 1X/DAY ORAL
     Route: 048
  4. BLEOMYCIN [Suspect]
     Active Substance: BLEOMYCIN SULFATE
     Indication: TESTICULAR GERM CELL TUMOUR
     Dosage: 30 MG, DAILY (AT D1, 8, 15, EVERY 21 DAYS, FIRST LINE THERAPY FOR TWO OR MORE CYCLE)
  5. ETOPOSIDE. [Suspect]
     Active Substance: ETOPOSIDE
     Indication: TESTICULAR GERM CELL TUMOUR
     Dosage: 100 MG/M2, DAILY (D1?D5, EVERY 21 DAYS, FIRST LINE THERAPY FOR TWO OR MORE CYCLE)
  6. FLUCONAZOLE. [Concomitant]
     Active Substance: FLUCONAZOLE
     Indication: PROPHYLAXIS
     Dosage: 400 MG, 1X/DAY
  7. MESNA. [Suspect]
     Active Substance: MESNA
     Indication: TESTICULAR GERM CELL TUMOUR
     Dosage: UNK, CYCLIC (1000 D1,2,3, EVERY 12 DAYS, SALVAGE SECOND LINE CHEMOTHERAPY FOR AT LEAST TWO OR MORE C
  8. ACYCLOVIR [ACICLOVIR] [Concomitant]
     Active Substance: ACYCLOVIR
     Indication: PROPHYLAXIS
     Dosage: 400 MG, 2X/DAY
     Route: 048
  9. CISPLATIN. [Suspect]
     Active Substance: CISPLATIN
     Indication: TESTICULAR GERM CELL TUMOUR
     Dosage: 20 MG/M2, CYCLIC (DAY D1?D5, EVERY 21 DAYS, FIRST LINE THERAPY, FOR TWO OR MORE CYCLES)
  10. CISPLATIN. [Suspect]
     Active Substance: CISPLATIN
     Dosage: 60 MG/M2, DAILY (DAY 1, EVERY 12 DAYS, SALVAGE SECOND LINE CHEMOTHERAPY FOR AT LEAST TWO OR MORE CYC
  11. PACLITAXEL. [Suspect]
     Active Substance: PACLITAXEL
     Indication: TESTICULAR GERM CELL TUMOUR
     Dosage: 175 MG/M2, DAILY (D1)
  12. ETOPOSIDE. [Suspect]
     Active Substance: ETOPOSIDE
     Indication: STEM CELL TRANSPLANT
  13. G?CSF [Suspect]
     Active Substance: GRANULOCYTE COLONY-STIMULATING FACTOR NOS
     Indication: STEM CELL TRANSPLANT

REACTIONS (2)
  - Febrile neutropenia [Unknown]
  - Deafness [Unknown]
